FAERS Safety Report 10026686 (Version 2)
Quarter: 2014Q1

REPORT INFORMATION
  Report Type: Spontaneous
  Country: ZA (occurrence: ZA)
  Receive Date: 20140321
  Receipt Date: 20140326
  Transmission Date: 20141002
  Serious: Yes (Other)
  Sender: FDA-Public Use
  Company Number: ZA-IPSEN BIOPHARMACEUTICALS, INC.-2014-1329

PATIENT
  Age: 38 Year
  Sex: Female
  Weight: 70 kg

DRUGS (5)
  1. DYSPORT [Suspect]
     Indication: SKIN COSMETIC PROCEDURE
     Dosage: 25 UNITS
     Route: 065
     Dates: start: 20140301, end: 20140301
  2. DYSPORT [Suspect]
     Indication: OFF LABEL USE
  3. PREXUM PLUS [Concomitant]
     Indication: HYPERTENSION
     Route: 065
  4. PREGAMAL [Concomitant]
     Indication: IRON DEFICIENCY
     Route: 065
  5. EVITHYROX [Concomitant]
     Indication: PRODUCT USED FOR UNKNOWN INDICATION
     Route: 065

REACTIONS (7)
  - Burning sensation [Not Recovered/Not Resolved]
  - Pain [Not Recovered/Not Resolved]
  - Pain [Unknown]
  - Muscle spasms [Unknown]
  - Paraesthesia [Unknown]
  - Eyelid ptosis [Recovered/Resolved with Sequelae]
  - Headache [Unknown]
